FAERS Safety Report 6988775-9 (Version None)
Quarter: 2010Q3

REPORT INFORMATION
  Report Type: 
  Country: None (occurrence: None)
  Receive Date: 20100916
  Receipt Date: 20100902
  Transmission Date: 20110219
  Serious: Yes (Other)
  Sender: FDA-Public Use
  Company Number: JP-GENENTECH-306306

PATIENT
  Sex: Male

DRUGS (5)
  1. LUCENTIS [Suspect]
     Indication: MACULAR DEGENERATION
     Dosage: 0.05 ML, UNK
     Route: 031
     Dates: start: 20090601
  2. LUCENTIS [Suspect]
     Dosage: 0.05 ML, UNK
     Route: 031
     Dates: start: 20090601
  3. LUCENTIS [Suspect]
     Dosage: 0.05 ML, UNK
     Route: 031
     Dates: start: 20090801
  4. LUCENTIS [Suspect]
     Dosage: 0.05 ML, UNK
     Route: 031
     Dates: start: 20100401
  5. LUCENTIS [Suspect]
     Dosage: 0.05 ML, UNK
     Route: 031
     Dates: start: 20100601

REACTIONS (2)
  - VISUAL ACUITY REDUCED [None]
  - VISUAL IMPAIRMENT [None]
